FAERS Safety Report 17420374 (Version 2)
Quarter: 2020Q3

REPORT INFORMATION
  Report Type: Spontaneous
  Country: US (occurrence: US)
  Receive Date: 20200214
  Receipt Date: 20200826
  Transmission Date: 20201102
  Serious: No
  Sender: FDA-Public Use
  Company Number: US-TEVA-2020-US-1186083

PATIENT
  Sex: Female

DRUGS (30)
  1. INSULIN SYRG [Concomitant]
     Dosage: INSULIN SYRG MIS 1 ML/29G
     Dates: start: 20191106, end: 20200504
  2. POTASSIUM [Concomitant]
     Active Substance: POTASSIUM
     Dates: start: 20200207
  3. MAGNESIUM [Concomitant]
     Active Substance: MAGNESIUM
     Route: 065
  4. TIZANIDINE. [Concomitant]
     Active Substance: TIZANIDINE
     Route: 065
  5. COPAXONE [Suspect]
     Active Substance: GLATIRAMER ACETATE
     Indication: MULTIPLE SCLEROSIS
     Route: 058
     Dates: start: 20180317
  6. FUROSEMIDE. [Concomitant]
     Active Substance: FUROSEMIDE
     Dates: start: 20200122, end: 20200322
  7. VITAMIN D [Concomitant]
     Active Substance: VITAMIN D NOS
     Dosage: VITAMIND CAP 400UNIT
     Dates: start: 20190515
  8. PANTOPRAZOLE [Concomitant]
     Active Substance: PANTOPRAZOLE
     Dates: start: 20190624, end: 20200322
  9. HUMULIN N INJ U?100 [Concomitant]
     Dates: start: 20180502
  10. METHIMAZOLE. [Concomitant]
     Active Substance: METHIMAZOLE
     Dates: start: 20191202, end: 20200530
  11. METOPROL TAR [Concomitant]
     Dates: start: 20200130, end: 20200802
  12. METHIMAZOLE. [Concomitant]
     Active Substance: METHIMAZOLE
     Dates: start: 20190626, end: 20200322
  13. METOPROL TAR [Concomitant]
     Dates: start: 20190808, end: 20200429
  14. LOSARTAN. [Concomitant]
     Active Substance: LOSARTAN
     Dates: start: 20191206, end: 20200603
  15. HUMALOG [Concomitant]
     Active Substance: INSULIN LISPRO
     Dates: start: 20191102, end: 20200430
  16. HUMULIN N INJ U?100 [Concomitant]
     Dosage: HUMULIN N INJ U?100
     Dates: start: 20190722, end: 20200502
  17. PANTOPRAZOLE [Concomitant]
     Active Substance: PANTOPRAZOLE
     Dates: start: 20191229, end: 20200626
  18. METOPROL TAR [Concomitant]
     Dates: start: 20191101, end: 20200429
  19. HUMALOG [Concomitant]
     Active Substance: INSULIN LISPRO
     Dates: start: 20200122, end: 20200501
  20. LASIX [Concomitant]
     Active Substance: FUROSEMIDE
     Dates: start: 20190515
  21. CLOPIDOGREL [Concomitant]
     Active Substance: CLOPIDOGREL BISULFATE
     Dates: start: 20191216, end: 20200614
  22. NOVOLOG [Concomitant]
     Active Substance: INSULIN ASPART
     Route: 065
  23. METOPROL TAR [Concomitant]
     Dates: start: 20200130, end: 20200728
  24. CLOPIDOGREL [Concomitant]
     Active Substance: CLOPIDOGREL BISULFATE
     Dates: start: 20190908, end: 20200306
  25. HYDROCO/APAP [Concomitant]
     Active Substance: ACETAMINOPHEN\HYDROCODONE
     Dosage: HYDROCO/APAP TAB 5?325MG
     Dates: start: 20200111, end: 20200311
  26. HUMALOG [Concomitant]
     Active Substance: INSULIN LISPRO
     Dates: start: 20200124, end: 20200710
  27. PANTOPRAZOLE [Concomitant]
     Active Substance: PANTOPRAZOLE
     Dates: start: 20200102, end: 20200630
  28. CLOPIDOGREL [Concomitant]
     Active Substance: CLOPIDOGREL BISULFATE
     Dates: start: 20190910, end: 20200308
  29. INSULIN SYRG [Concomitant]
     Dosage: INSULIN SYRG MIS 0.5/31 G
     Dates: start: 20191111, end: 20200510
  30. AMPYRA [Concomitant]
     Active Substance: DALFAMPRIDINE

REACTIONS (2)
  - Gait disturbance [Unknown]
  - Movement disorder [Not Recovered/Not Resolved]
